FAERS Safety Report 10488655 (Version 1)
Quarter: 2014Q3

REPORT INFORMATION
  Report Type: Spontaneous
  Country: US (occurrence: None)
  Receive Date: 20140930
  Receipt Date: 20140930
  Transmission Date: 20150326
  Serious: Yes (Hospitalization)
  Sender: FDA-Public Use
  Company Number: 153741

PATIENT
  Age: 42 Year
  Sex: Male

DRUGS (1)
  1. CISPLATIN. [Suspect]
     Active Substance: CISPLATIN
     Indication: TESTIS CANCER
     Dosage: 400 MG/2 X TWO (INSTEAD OF 40MG/M2 X TWO)

REACTIONS (12)
  - Oropharyngeal candidiasis [None]
  - Anaemia [None]
  - Thrombocytopenia [None]
  - Liver injury [None]
  - Respiratory failure [None]
  - Immunosuppression [None]
  - Haemodialysis [None]
  - Toxicity to various agents [None]
  - Sudden hearing loss [None]
  - Lobar pneumonia [None]
  - Accidental overdose [None]
  - White blood cell count decreased [None]
